FAERS Safety Report 12347048 (Version 2)
Quarter: 2016Q2

REPORT INFORMATION
  Report Type: Report from Study
  Country: CN (occurrence: CN)
  Receive Date: 20160509
  Receipt Date: 20160513
  Transmission Date: 20160815
  Serious: Yes (Death, Hospitalization)
  Sender: FDA-Public Use
  Company Number: CN-ABBVIE-16P-035-1622439-00

PATIENT
  Age: 48 Year
  Sex: Female

DRUGS (1)
  1. ZEMPLAR [Suspect]
     Active Substance: PARICALCITOL
     Indication: SECONDARY HYPERTHYROIDISM
     Route: 050
     Dates: start: 20160305

REACTIONS (5)
  - Death [Fatal]
  - Pulmonary hypertension [Unknown]
  - Blood parathyroid hormone increased [Unknown]
  - Renal hypertension [Unknown]
  - Arrhythmia [Unknown]

NARRATIVE: CASE EVENT DATE: 201604
